FAERS Safety Report 16124976 (Version 1)
Quarter: 2019Q1

REPORT INFORMATION
  Report Type: Spontaneous
  Country: DE (occurrence: DE)
  Receive Date: 20190327
  Receipt Date: 20190327
  Transmission Date: 20190418
  Serious: Yes (Hospitalization, Other)
  Sender: FDA-Public Use
  Company Number: DE-BAUSCH-BL-2019-008851

PATIENT
  Age: 73 Year
  Sex: Female

DRUGS (3)
  1. HYPNOREX [Suspect]
     Active Substance: LITHIUM CARBONATE
     Indication: BIPOLAR DISORDER
     Route: 065
  2. HYDROCHLOROTHIAZIDE. [Suspect]
     Active Substance: HYDROCHLOROTHIAZIDE
     Indication: HYPERTENSION
     Route: 065
     Dates: start: 2012
  3. ENALAPRIL [Suspect]
     Active Substance: ENALAPRIL
     Indication: HYPERTENSION
     Route: 065
     Dates: start: 2012

REACTIONS (9)
  - Disturbance in attention [Unknown]
  - Asthenia [Unknown]
  - Depression [Recovering/Resolving]
  - Accidental exposure to product [Unknown]
  - Acute kidney injury [Unknown]
  - Ataxia [Unknown]
  - Toxicity to various agents [Unknown]
  - Tremor [Unknown]
  - Dizziness [Unknown]
